FAERS Safety Report 8512582-9 (Version None)
Quarter: 2012Q3

REPORT INFORMATION
  Report Type: 
  Country: None (occurrence: None)
  Receive Date: 20120716
  Receipt Date: 20120709
  Transmission Date: 20120928
  Serious: Yes (Hospitalization, Other)
  Sender: FDA-Public Use
  Company Number: JP-PFIZER INC-2012078763

PATIENT
  Age: 68 Year
  Sex: Female
  Weight: 42.2 kg

DRUGS (2)
  1. CABERGOLINE [Suspect]
     Indication: PITUITARY-DEPENDENT CUSHING'S SYNDROME
     Dosage: 0.25 MG, WEEKLY
     Route: 048
     Dates: start: 20110310, end: 20110101
  2. CABERGOLINE [Suspect]
     Dosage: 2 MG, WEEKLY
     Route: 048
     Dates: start: 20110608

REACTIONS (3)
  - DECREASED APPETITE [None]
  - BACK PAIN [None]
  - SECONDARY ADRENOCORTICAL INSUFFICIENCY [None]
